FAERS Safety Report 6336327-6 (Version None)
Quarter: 2009Q3

REPORT INFORMATION
  Report Type: 
  Country: None (occurrence: None)
  Receive Date: 20090901
  Receipt Date: 20090824
  Transmission Date: 20100115
  Serious: Yes (Other)
  Sender: FDA-Public Use
  Company Number: US-AMGEN-KDL361067

PATIENT
  Sex: Male

DRUGS (1)
  1. ENBREL [Suspect]
     Indication: ANKYLOSING SPONDYLITIS
     Route: 058
     Dates: start: 20080501

REACTIONS (13)
  - ANXIETY [None]
  - ARTHRALGIA [None]
  - DIZZINESS [None]
  - EATING DISORDER [None]
  - FATIGUE [None]
  - HOT FLUSH [None]
  - JOINT EFFUSION [None]
  - LOSS OF CONSCIOUSNESS [None]
  - MIGRAINE [None]
  - NAUSEA [None]
  - PAIN [None]
  - VISION BLURRED [None]
  - VOMITING [None]
